FAERS Safety Report 8087437-7 (Version None)
Quarter: 2012Q1

REPORT INFORMATION
  Report Type: 
  Country: None (occurrence: None)
  Receive Date: 20120128
  Receipt Date: 20110519
  Transmission Date: 20120608
  Serious: No
  Sender: FDA-Public Use
  Company Number: US-ABBOTT-11P-163-0727884-00

PATIENT
  Age: 47 Year
  Sex: Male

DRUGS (5)
  1. ASACOL [Concomitant]
     Indication: CROHN'S DISEASE
     Route: 048
  2. PREDNISONE TAB [Concomitant]
     Indication: CROHN'S DISEASE
     Dosage: TAPERING
     Route: 048
  3. PRILOSEC [Concomitant]
     Indication: CROHN'S DISEASE
     Route: 048
  4. HUMIRA [Suspect]
     Indication: CROHN'S DISEASE
     Dosage: LOADING DOSE
     Dates: start: 20110513, end: 20110513
  5. HUMIRA [Suspect]
     Dosage: SECOND LOADING DOSE
     Dates: start: 20110520

REACTIONS (1)
  - HAEMATOCHEZIA [None]
